FAERS Safety Report 6983701-0 (Version None)
Quarter: 2010Q3

REPORT INFORMATION
  Report Type: 
  Country: None (occurrence: None)
  Receive Date: 20100914
  Receipt Date: 20050125
  Transmission Date: 20110219
  Serious: Yes (Other)
  Sender: FDA-Public Use
  Company Number: US-WYE-H07164308

PATIENT
  Age: 43 Year
  Sex: Male
  Weight: 101.7 kg

DRUGS (3)
  1. IBUPROFEN [Suspect]
     Indication: PAIN
     Route: 048
  2. ORUDIS - SLOW RELEASE [Suspect]
     Indication: PAIN
     Route: 048
  3. RELAFEN [Suspect]
     Indication: PAIN
     Route: 065

REACTIONS (2)
  - GASTRITIS [None]
  - OVERDOSE [None]
